FAERS Safety Report 23112133 (Version 2)
Quarter: 2023Q4

REPORT INFORMATION
  Report Type: Spontaneous
  Country: FR (occurrence: FR)
  Receive Date: 20231026
  Receipt Date: 20231211
  Transmission Date: 20240110
  Serious: Yes (Other)
  Sender: FDA-Public Use
  Company Number: None

PATIENT
  Age: 55 Year
  Sex: Female

DRUGS (2)
  1. PEMBROLIZUMAB [Suspect]
     Active Substance: PEMBROLIZUMAB
     Indication: Breast cancer
     Dosage: 200 MILLIGRAMS, EVERY 3 WEEKS (Q3W) IN COMBINATION WITH PACLITAXEL FROM 14-FEB-2022 TO 23-MAY-2022 T
     Route: 042
     Dates: start: 20220214
  2. PACLITAXEL [Concomitant]
     Active Substance: PACLITAXEL
     Indication: Breast cancer
     Dosage: 90 MILLIGRAMS/SQ. METER IN COMBINATION WITH PEMBROLIZUMAB FROM 14-FEB-2022 TO 23-MAY-2022
     Route: 042
     Dates: start: 20220214, end: 20220523

REACTIONS (2)
  - Sjogren^s syndrome [Not Recovered/Not Resolved]
  - Hypothyroidism [Not Recovered/Not Resolved]

NARRATIVE: CASE EVENT DATE: 20220701
